FAERS Safety Report 10080426 (Version 1)
Quarter: 2014Q2

REPORT INFORMATION
  Report Type: Report from Study
  Country: US (occurrence: US)
  Receive Date: 20140416
  Receipt Date: 20140416
  Transmission Date: 20141212
  Serious: Yes (Other)
  Sender: FDA-Public Use
  Company Number: US-ROCHE-1380490

PATIENT
  Sex: Female
  Weight: 85.6 kg

DRUGS (12)
  1. NUTROPIN AQ [Suspect]
     Indication: HYPOPITUITARISM
     Route: 058
  2. HYDROCORTISONE [Concomitant]
     Indication: ADRENOCORTICOTROPIC HORMONE DEFICIENCY
     Dosage: AM
     Route: 048
  3. LAMOTRIGINE [Concomitant]
     Route: 048
  4. LUTERAN [Concomitant]
     Route: 048
  5. TRANXENE [Concomitant]
     Route: 048
  6. CORTEF [Concomitant]
     Dosage: 10MG IN AM AND 5MG IN PM
     Route: 065
  7. LAMICTAL [Concomitant]
     Route: 048
  8. SYNTHROID [Concomitant]
     Route: 048
  9. ATIVAN [Concomitant]
     Route: 048
  10. GLUCOPHAGE [Concomitant]
     Route: 048
  11. LYRICA [Concomitant]
     Route: 048
  12. LYRICA [Concomitant]
     Dosage: 1 CAPSULE AT NIGHT
     Route: 048

REACTIONS (6)
  - Dysmenorrhoea [Unknown]
  - Snoring [Unknown]
  - Acanthosis [Unknown]
  - Hair growth abnormal [Unknown]
  - Thinking abnormal [Unknown]
  - Obesity [Unknown]
